FAERS Safety Report 9318547 (Version 5)
Quarter: 2015Q1

REPORT INFORMATION
  Report Type: Spontaneous
  Country: DK (occurrence: None)
  Receive Date: 20130524
  Receipt Date: 20150114
  Transmission Date: 20150721
  Serious: No
  Sender: FDA-Public Use
  Company Number: DK-2013-1456

PATIENT
  Age: 63 Year
  Sex: Female

DRUGS (4)
  1. NAVELBINE [Suspect]
     Active Substance: VINORELBINE TARTRATE
     Indication: BREAST CANCER
     Dates: start: 2009
  2. SENDOXAN [Suspect]
     Active Substance: CYCLOPHOSPHAMIDE
     Indication: BREAST CANCER
     Dates: start: 2009
  3. HERCEPTIN [Suspect]
     Active Substance: TRASTUZUMAB
     Indication: BREAST CANCER
     Route: 042
     Dates: start: 2006, end: 201303
  4. FASLODEX [Suspect]
     Active Substance: FULVESTRANT
     Indication: BREAST CANCER RECURRENT

REACTIONS (10)
  - Arthralgia [None]
  - Photopsia [None]
  - Visual field defect [None]
  - Pain in extremity [None]
  - Sensory disturbance [None]
  - Ocular hypertension [None]
  - Vitreous detachment [None]
  - Retinal detachment [None]
  - Visual impairment [None]
  - Stress [None]

NARRATIVE: CASE EVENT DATE: 20121011
